FAERS Safety Report 15934815 (Version 1)
Quarter: 2019Q1

REPORT INFORMATION
  Report Type: Spontaneous
  Country: FR (occurrence: FR)
  Receive Date: 20190207
  Receipt Date: 20190207
  Transmission Date: 20190417
  Serious: Yes (Hospitalization, Other)
  Sender: FDA-Public Use
  Company Number: FR-TEVA-2019-FR-1007067

PATIENT
  Age: 33 Year
  Sex: Male
  Weight: 100 kg

DRUGS (15)
  1. ANAFRANIL [Concomitant]
     Active Substance: CLOMIPRAMINE HYDROCHLORIDE
  2. LYRICA [Concomitant]
     Active Substance: PREGABALIN
  3. IMUREL [Suspect]
     Active Substance: AZATHIOPRINE SODIUM
     Indication: MULTIPLE SCLEROSIS
     Route: 048
     Dates: start: 200401, end: 200407
  4. TARKA [Concomitant]
     Active Substance: TRANDOLAPRIL\VERAPAMIL HYDROCHLORIDE
  5. FURADOINE [Concomitant]
     Active Substance: NITROFURANTOIN
  6. BACTRIM [Concomitant]
     Active Substance: SULFAMETHOXAZOLE\TRIMETHOPRIM
  7. MITOXANTRONE BASE [Suspect]
     Active Substance: MITOXANTRONE HYDROCHLORIDE
     Indication: MULTIPLE SCLEROSIS
     Route: 048
     Dates: start: 200307, end: 200312
  8. TYSABRI [Suspect]
     Active Substance: NATALIZUMAB
     Indication: MULTIPLE SCLEROSIS
     Route: 042
     Dates: start: 20080825, end: 20120830
  9. CELLCEPT [Suspect]
     Active Substance: MYCOPHENOLATE MOFETIL\MYCOPHENOLATE MOFETIL HYDROCHLORIDE
     Indication: MULTIPLE SCLEROSIS
     Route: 048
     Dates: start: 200407, end: 200808
  10. BACLOFENE [Concomitant]
     Active Substance: BACLOFEN
  11. ANTI COLIBACILLE SERUM [Concomitant]
  12. LYRICA [Concomitant]
     Active Substance: PREGABALIN
  13. MANTADIX [Concomitant]
     Active Substance: AMANTADINE HYDROCHLORIDE
  14. FORLAX [Concomitant]
     Active Substance: POLYETHYLENE GLYCOL 4000
  15. HYPERIUM [Concomitant]
     Active Substance: RILMENIDINE PHOSPHATE

REACTIONS (1)
  - Renal cancer stage II [Not Recovered/Not Resolved]

NARRATIVE: CASE EVENT DATE: 201209
